FAERS Safety Report 7842790-1 (Version None)
Quarter: 2011Q4

REPORT INFORMATION
  Report Type: 
  Country: None (occurrence: None)
  Receive Date: 20111025
  Receipt Date: 20111012
  Transmission Date: 20120403
  Serious: Yes (Hospitalization)
  Sender: FDA-Public Use
  Company Number: US-BAYER-2011-028318

PATIENT
  Age: 43 Year
  Sex: Female
  Weight: 81.633 kg

DRUGS (1)
  1. YAZ [Suspect]
     Indication: CONTRACEPTION
     Dosage: UNK
     Dates: start: 20061201, end: 20091101

REACTIONS (4)
  - CHOLELITHIASIS [None]
  - CHEST PAIN [None]
  - PAIN [None]
  - CHOLECYSTITIS CHRONIC [None]
